FAERS Safety Report 12122545 (Version 1)
Quarter: 2016Q1

REPORT INFORMATION
  Report Type: Spontaneous
  Country: US (occurrence: US)
  Receive Date: 20160226
  Receipt Date: 20160226
  Transmission Date: 20160526
  Serious: No
  Sender: FDA-Public Use
  Company Number: US-JNJFOC-20160103666

PATIENT
  Sex: Male
  Weight: 86.18 kg

DRUGS (3)
  1. DEXAMETHASONE. [Concomitant]
     Active Substance: DEXAMETHASONE
     Route: 065
  2. DOXIL [Suspect]
     Active Substance: DOXORUBICIN HYDROCHLORIDE
     Indication: PLASMA CELL MYELOMA
     Dosage: 8 CYCLES
     Route: 042
     Dates: start: 201501, end: 2016
  3. ZOMETA [Concomitant]
     Active Substance: ZOLEDRONIC ACID
     Route: 042

REACTIONS (4)
  - Red blood cell abnormality [Unknown]
  - Hypoacusis [Not Recovered/Not Resolved]
  - White blood cell count decreased [Unknown]
  - Laboratory test abnormal [Unknown]

NARRATIVE: CASE EVENT DATE: 2015
